FAERS Safety Report 11096125 (Version 1)
Quarter: 2015Q2

REPORT INFORMATION
  Report Type: Spontaneous
  Country: US (occurrence: None)
  Receive Date: 20150506
  Receipt Date: 20150506
  Transmission Date: 20150821
  Serious: Yes (Life-Threatening, Hospitalization, Disabling, Other)
  Sender: FDA-Public Use
  Company Number: None

PATIENT
  Age: 48 Year
  Sex: Female
  Weight: 66.68 kg

DRUGS (3)
  1. LO LOESTRIN FE [Suspect]
     Active Substance: ETHINYL ESTRADIOL\NORETHINDRONE ACETATE
     Indication: UTERINE LEIOMYOMA
     Route: 048
     Dates: start: 20141124, end: 20150131
  2. XARELTO [Concomitant]
     Active Substance: RIVAROXABAN
  3. BOSLEY HAIR VITAMINS [Concomitant]

REACTIONS (3)
  - Impaired work ability [None]
  - Pulmonary embolism [None]
  - Deep vein thrombosis [None]

NARRATIVE: CASE EVENT DATE: 20150407
